FAERS Safety Report 6295226-9 (Version None)
Quarter: 2009Q3

REPORT INFORMATION
  Report Type: 
  Country: None (occurrence: None)
  Receive Date: 20090803
  Receipt Date: 20090721
  Transmission Date: 20100115
  Serious: Yes (Other)
  Sender: FDA-Public Use
  Company Number: DE-MYLANLABS-2009S1012870

PATIENT
  Age: 34 Year
  Sex: Male
  Weight: 84 kg

DRUGS (1)
  1. CIPROFLOXACIN HCL [Suspect]
     Indication: SINUSITIS
     Dosage: 500MG B.I.D
     Route: 048

REACTIONS (1)
  - ENTEROCOLITIS HAEMORRHAGIC [None]
